FAERS Safety Report 12800618 (Version 1)
Quarter: 2016Q3

REPORT INFORMATION
  Report Type: Spontaneous
  Country: US (occurrence: US)
  Receive Date: 20160930
  Receipt Date: 20160930
  Transmission Date: 20161109
  Serious: Yes (Other)
  Sender: FDA-Public Use
  Company Number: US-CELGENEUS-USA-2016096701

PATIENT
  Age: 67 Year
  Sex: Male

DRUGS (7)
  1. ZETIA [Concomitant]
     Active Substance: EZETIMIBE
     Indication: PRODUCT USED FOR UNKNOWN INDICATION
     Route: 065
  2. REVLIMID [Suspect]
     Active Substance: LENALIDOMIDE
     Indication: PLASMA CELL MYELOMA
     Route: 048
     Dates: start: 201308, end: 2013
  3. REVLIMID [Suspect]
     Active Substance: LENALIDOMIDE
     Route: 048
     Dates: start: 201311, end: 2014
  4. REVLIMID [Suspect]
     Active Substance: LENALIDOMIDE
     Route: 048
     Dates: start: 201606
  5. CLOBETASOL [Concomitant]
     Active Substance: CLOBETASOL
     Indication: PRODUCT USED FOR UNKNOWN INDICATION
     Route: 065
  6. ADVAIR HFA [Concomitant]
     Active Substance: FLUTICASONE PROPIONATE\SALMETEROL XINAFOATE
     Indication: PRODUCT USED FOR UNKNOWN INDICATION
     Route: 065
  7. KYPROLIS [Suspect]
     Active Substance: CARFILZOMIB
     Indication: PLASMA CELL MYELOMA
     Route: 065

REACTIONS (1)
  - Dyspnoea [Unknown]

NARRATIVE: CASE EVENT DATE: 20160927
